FAERS Safety Report 8152277-7 (Version None)
Quarter: 2012Q1

REPORT INFORMATION
  Report Type: 
  Country: None (occurrence: None)
  Receive Date: 20120221
  Receipt Date: 20120217
  Transmission Date: 20120608
  Serious: No
  Sender: FDA-Public Use
  Company Number: US-PFIZER INC-2012043646

PATIENT
  Sex: Female
  Weight: 109.7 kg

DRUGS (2)
  1. DILTIAZEM [Concomitant]
     Indication: HYPERTENSION
     Dosage: UNK
  2. DICLOFENAC SODIUM [Suspect]
     Indication: PAIN
     Dosage: 75 MG, 2X/DAY
     Route: 048

REACTIONS (2)
  - HEADACHE [None]
  - SURGERY [None]
